FAERS Safety Report 11114861 (Version 1)
Quarter: 2015Q2

REPORT INFORMATION
  Report Type: Spontaneous
  Country: US (occurrence: None)
  Receive Date: 20150514
  Receipt Date: 20150514
  Transmission Date: 20150821
  Serious: Yes (Other)
  Sender: FDA-Public Use
  Company Number: None

PATIENT
  Age: 50 Year
  Sex: Female
  Weight: 79.38 kg

DRUGS (14)
  1. ASTHMA INHALER [Concomitant]
     Active Substance: UNSPECIFIED INGREDIENT
  2. NSAIDS [Concomitant]
     Active Substance: UNSPECIFIED INGREDIENT
  3. LEVOFLOXACIN. [Suspect]
     Active Substance: LEVOFLOXACIN
     Indication: BRONCHITIS
     Dosage: 10 PILLS
     Route: 048
     Dates: start: 20150417, end: 20150419
  4. ACETYL L CARNITINE [Concomitant]
  5. MOBIX [Concomitant]
     Active Substance: MELOXICAM
  6. CURCUMIN [Concomitant]
     Active Substance: CURCUMIN
  7. DIGESTIVE ENZYMES [Concomitant]
     Active Substance: UNSPECIFIED INGREDIENT
  8. FLUTICASON PROPINATE [Concomitant]
  9. MAGNESIUM OIL [Concomitant]
  10. MAGNESIUM GLYONATE [Concomitant]
  11. COENZYME Q10 [Concomitant]
     Active Substance: UBIDECARENONE
  12. AMBIEN [Concomitant]
     Active Substance: ZOLPIDEM TARTRATE
  13. MULTI VIT [Concomitant]
  14. VITAMIN B12 [Concomitant]
     Active Substance: CYANOCOBALAMIN

REACTIONS (6)
  - Arthralgia [None]
  - Tinnitus [None]
  - Weight bearing difficulty [None]
  - Fatigue [None]
  - Insomnia [None]
  - Myalgia [None]

NARRATIVE: CASE EVENT DATE: 20150419
